FAERS Safety Report 11933380 (Version 1)
Quarter: 2016Q1

REPORT INFORMATION
  Report Type: Spontaneous
  Country: US (occurrence: US)
  Receive Date: 20160121
  Receipt Date: 20160121
  Transmission Date: 20160526
  Serious: Yes (Other)
  Sender: FDA-Public Use
  Company Number: US-ASTRAZENECA-2016SE04859

PATIENT
  Age: 65 Year
  Sex: Female
  Weight: 88.9 kg

DRUGS (7)
  1. SIMVASTATIN. [Concomitant]
     Active Substance: SIMVASTATIN
     Indication: BLOOD CHOLESTEROL ABNORMAL
     Route: 048
     Dates: start: 2008
  2. METOPROLOL SUCCINATE. [Suspect]
     Active Substance: METOPROLOL SUCCINATE
     Indication: HEART RATE IRREGULAR
     Dosage: 25 MG DAILY, MANUFACTURED BY DR. REDDY
     Route: 048
     Dates: start: 2007, end: 2013
  3. METOPROLOL SUCCINATE. [Suspect]
     Active Substance: METOPROLOL SUCCINATE
     Indication: HYPERTENSION
     Dosage: 25 MG DAILY, MANUFACTURED BY DR. REDDY
     Route: 048
     Dates: start: 2007, end: 2013
  4. LISINOPRIL. [Suspect]
     Active Substance: LISINOPRIL
     Indication: BLOOD PRESSURE ABNORMAL
     Route: 048
     Dates: start: 2007, end: 2014
  5. LOSARTAN POTASSIUM. [Concomitant]
     Active Substance: LOSARTAN POTASSIUM
     Indication: BLOOD PRESSURE ABNORMAL
     Route: 048
     Dates: start: 2014
  6. METOPROLOL SUCCINATE. [Suspect]
     Active Substance: METOPROLOL SUCCINATE
     Indication: HEART RATE IRREGULAR
     Dosage: 50 MG DAILY, MANUFACTURED BY DR. REDDY
     Route: 048
     Dates: start: 2013, end: 20150809
  7. METOPROLOL SUCCINATE. [Suspect]
     Active Substance: METOPROLOL SUCCINATE
     Indication: HYPERTENSION
     Dosage: 50 MG DAILY, MANUFACTURED BY DR. REDDY
     Route: 048
     Dates: start: 2013, end: 20150809

REACTIONS (21)
  - Fall [Unknown]
  - Gait disturbance [Recovered/Resolved]
  - Cardiac disorder [Unknown]
  - Cough [Unknown]
  - Fatigue [Unknown]
  - Tinea pedis [Unknown]
  - Dehydration [Unknown]
  - Depressed mood [Unknown]
  - Weight increased [Unknown]
  - Dyspnoea [Unknown]
  - Constipation [Unknown]
  - Nail discolouration [Unknown]
  - Diarrhoea [Unknown]
  - Anaemia [Unknown]
  - Asthenia [Unknown]
  - Skin disorder [Recovered/Resolved]
  - Loss of consciousness [Unknown]
  - Insomnia [Unknown]
  - Alopecia [Recovered/Resolved]
  - Laziness [Unknown]
  - Syncope [Unknown]

NARRATIVE: CASE EVENT DATE: 2008
